FAERS Safety Report 5809000-8 (Version None)
Quarter: 2008Q3

REPORT INFORMATION
  Report Type: 
  Country: None (occurrence: None)
  Receive Date: 20080710
  Receipt Date: 20080710
  Transmission Date: 20090109
  Serious: No
  Sender: FDA-Public Use
  Company Number: None

PATIENT
  Sex: Male
  Weight: 88.4514 kg

DRUGS (2)
  1. CIPRO [Suspect]
     Indication: DIVERTICULITIS
     Dates: start: 19960101, end: 20060101
  2. LEVAQUIN [Suspect]
     Indication: DIVERTICULITIS
     Dates: start: 20020101, end: 20060101

REACTIONS (1)
  - TENDON DISORDER [None]
